FAERS Safety Report 4896441-9 (Version None)
Quarter: 2006Q1

REPORT INFORMATION
  Report Type: 
  Country: None (occurrence: None)
  Receive Date: 20060131
  Receipt Date: 20020218
  Transmission Date: 20060701
  Serious: Yes (Hospitalization)
  Sender: FDA-Public Use
  Company Number: PHHO2002VE11122

PATIENT
  Age: 71 Year
  Sex: Female

DRUGS (5)
  1. ZELMAC / HTF 919A [Suspect]
  2. ADALAT [Concomitant]
  3. CAPTOPRIL [Concomitant]
  4. CORAZEM [Concomitant]
  5. PARIET [Concomitant]

REACTIONS (4)
  - CEREBRAL HAEMORRHAGE [None]
  - HYPERTENSION [None]
  - INCONTINENCE [None]
  - LOSS OF CONSCIOUSNESS [None]
